FAERS Safety Report 12935892 (Version 3)
Quarter: 2017Q1

REPORT INFORMATION
  Report Type: Spontaneous
  Country: US (occurrence: US)
  Receive Date: 20161114
  Receipt Date: 20170316
  Transmission Date: 20170428
  Serious: Yes (Other)
  Sender: FDA-Public Use
  Company Number: US-009507513-1610USA010509

PATIENT
  Age: 66 Year
  Sex: Male

DRUGS (6)
  1. WARFARIN [Interacting]
     Active Substance: WARFARIN
     Indication: MITRAL VALVE REPLACEMENT
     Dosage: DOSE INCREASED BY 5%
     Dates: start: 2015, end: 2015
  2. WARFARIN [Interacting]
     Active Substance: WARFARIN
     Indication: ANTICOAGULANT THERAPY
     Dosage: 75 MG, QW (DOSE INCREASED BY 67%)
     Dates: start: 2015, end: 2015
  3. WARFARIN [Interacting]
     Active Substance: WARFARIN
     Dosage: 55 MG, QW (TOTAL DOSE REDUCTION OF 26.7%)
     Dates: start: 2015
  4. LEDIPASVIR (+) SOFOSBUVIR [Interacting]
     Active Substance: LEDIPASVIR\SOFOSBUVIR
     Indication: CHRONIC HEPATITIS C
     Dosage: UNK, 12 WEEK COURSE
     Dates: start: 2015, end: 2015
  5. WARFARIN [Interacting]
     Active Substance: WARFARIN
     Indication: ATRIAL FIBRILLATION
     Dosage: 42.5-45 MG/WEEK PRIOR TO HCV TREATMENT
     Dates: end: 2015
  6. REBETOL [Suspect]
     Active Substance: RIBAVIRIN
     Indication: CHRONIC HEPATITIS C
     Dosage: 600 MG, BID, A 12 WEEK COURSE
     Route: 048
     Dates: start: 2015, end: 2015

REACTIONS (2)
  - Drug interaction [Unknown]
  - Anticoagulation drug level below therapeutic [Unknown]

NARRATIVE: CASE EVENT DATE: 2015
